FAERS Safety Report 8965729 (Version 2)
Quarter: 2013Q1

REPORT INFORMATION
  Report Type: Spontaneous
  Country: DE (occurrence: None)
  Receive Date: 20121204
  Receipt Date: 20130220
  Transmission Date: 20140127
  Serious: Yes (Other)
  Sender: FDA-Public Use
  Company Number: FK201203566

PATIENT
  Sex: Male

DRUGS (3)
  1. ROPIVACAINE [Suspect]
     Indication: EPIDURAL ANAESTHESIA
     Route: 064
  2. MEPIVACAINE [Suspect]
     Indication: LOCAL ANAESTHESIA
     Route: 064
  3. PRILOCAINE [Suspect]
     Indication: PRODUCT USED FOR UNKNOWN INDICATION

REACTIONS (4)
  - Maternal drugs affecting foetus [None]
  - Cyanosis neonatal [None]
  - Methaemoglobinaemia [None]
  - Congenital choroid plexus cyst [None]
